FAERS Safety Report 9224690 (Version 1)
Quarter: 2013Q2

REPORT INFORMATION
  Report Type: Spontaneous
  Country: US (occurrence: None)
  Receive Date: 20130409
  Receipt Date: 20130409
  Transmission Date: 20140414
  Serious: Yes (Other)
  Sender: FDA-Public Use
  Company Number: None

PATIENT
  Age: 67 Year
  Sex: Female

DRUGS (6)
  1. LAMOTRIGINE [Suspect]
     Dosage: 100MG 1 PO QD TABLET
     Route: 048
     Dates: start: 201301, end: 201303
  2. TRILEPTAL 600MG (GENERIC) 1 1/2-TWO PO QHS [Suspect]
     Dosage: 600MG 1 1/2-2 PO QHS TABLET
     Route: 048
     Dates: start: 201301, end: 201303
  3. CYMBALTA [Concomitant]
  4. SEROQUD [Concomitant]
  5. TRILEPTEH [Concomitant]
  6. LAMCICTAL [Concomitant]

REACTIONS (3)
  - Dysphagia [None]
  - Product coating issue [None]
  - Product substitution issue [None]
